FAERS Safety Report 26187339 (Version 1)
Quarter: 2025Q4

REPORT INFORMATION
  Report Type: Spontaneous
  Country: US (occurrence: None)
  Receive Date: 20251222
  Receipt Date: 20251222
  Transmission Date: 20260117
  Serious: No
  Sender: FDA-CTU
  Company Number: None

PATIENT
  Age: 60 Year
  Sex: Female
  Weight: 75.6 kg

DRUGS (1)
  1. TARPEYO [Suspect]
     Active Substance: BUDESONIDE
     Dosage: FREQUENCY : DAILY;
     Dates: start: 20250625

REACTIONS (1)
  - Alopecia [None]

NARRATIVE: CASE EVENT DATE: 20251222
